FAERS Safety Report 7916590-8 (Version None)
Quarter: 2011Q4

REPORT INFORMATION
  Report Type: 
  Country: None (occurrence: None)
  Receive Date: 20111031
  Receipt Date: 20100517
  Transmission Date: 20120403
  Serious: Yes (Death, Hospitalization, Other)
  Sender: FDA-Public Use
  Company Number: 2011030152

PATIENT

DRUGS (1)
  1. IMMUNE GLOBULIN INTRAVENOUS (HUMAN) [Suspect]
     Indication: COMBINED IMMUNODEFICIENCY
     Dosage: (INTRAVENOUS (NOT OTHERWISE SPECIFIED)
     Route: 042
     Dates: start: 20090710, end: 20090731

REACTIONS (6)
  - DISEASE COMPLICATION [None]
  - COMBINED IMMUNODEFICIENCY [None]
  - GASTROENTERITIS NOROVIRUS [None]
  - EPSTEIN-BARR VIRUS ASSOCIATED LYMPHOPROLIFERATIVE DISORDER [None]
  - LUNG INFECTION PSEUDOMONAL [None]
  - DEVICE RELATED INFECTION [None]
